FAERS Safety Report 6783144-9 (Version None)
Quarter: 2010Q2

REPORT INFORMATION
  Report Type: 
  Country: None (occurrence: None)
  Receive Date: 20100622
  Receipt Date: 20100617
  Transmission Date: 20101027
  Serious: Yes (Other)
  Sender: FDA-Public Use
  Company Number: AR-PFIZER INC-2010059323

PATIENT
  Age: 39 Year
  Sex: Female
  Weight: 53 kg

DRUGS (1)
  1. FARLUTALE [Suspect]
     Indication: AMENORRHOEA
     Dosage: 10 MG, 1X/DAY, 5 DAYS IN THE MIDDLE OF THE CYCLE
     Route: 048
     Dates: start: 20100301

REACTIONS (5)
  - AGITATION [None]
  - DEPRESSION [None]
  - DRUG INEFFECTIVE [None]
  - FLUID RETENTION [None]
  - POLLAKIURIA [None]
